FAERS Safety Report 7007824-5 (Version None)
Quarter: 2010Q3

REPORT INFORMATION
  Report Type: 
  Country: None (occurrence: None)
  Receive Date: 20100922
  Receipt Date: 20100909
  Transmission Date: 20110219
  Serious: Yes (Death)
  Sender: FDA-Public Use
  Company Number: JP-MERCK-1008USA03706

PATIENT
  Age: 63 Year
  Sex: Female
  Weight: 64 kg

DRUGS (24)
  1. JANUVIA [Suspect]
     Indication: DIABETES MELLITUS
     Dosage: 1 MG AND EUMUNAE 2 MG AFTER SUPPER
     Route: 048
     Dates: start: 20100525, end: 20100730
  2. LOXONIN [Concomitant]
     Indication: BACK PAIN
     Route: 048
     Dates: start: 20100427, end: 20100730
  3. TAKEPRON [Concomitant]
     Indication: GASTROINTESTINAL ULCER
     Route: 048
     Dates: start: 20100427, end: 20100730
  4. ADOFEED [Concomitant]
     Indication: BACK PAIN
     Route: 061
     Dates: end: 20100730
  5. GLYBURIDE [Concomitant]
     Indication: DIABETES MELLITUS
     Dosage: AFTER THE BREAKFAST
     Route: 048
     Dates: start: 20100525, end: 20100719
  6. GLYBURIDE [Concomitant]
     Route: 048
     Dates: start: 20100720, end: 20100730
  7. EPADEL [Concomitant]
     Indication: DYSLIPIDAEMIA
     Route: 048
     Dates: end: 20100730
  8. METFORMIN HCL [Concomitant]
     Indication: DIABETES MELLITUS
     Dosage: EVENING IN THE MORNING
     Route: 048
     Dates: start: 20061027, end: 20100730
  9. CERCINE [Concomitant]
     Indication: SCHIZOPHRENIA
     Route: 048
     Dates: start: 20030604, end: 20100730
  10. CERCINE [Concomitant]
     Indication: INSOMNIA
     Route: 048
     Dates: start: 20030604, end: 20100730
  11. RISPERDAL [Concomitant]
     Indication: SCHIZOPHRENIA
     Dosage: NEMUNAE
     Route: 048
     Dates: start: 20031114, end: 20100730
  12. RISPERDAL [Concomitant]
     Indication: INSOMNIA
     Dosage: NEMUNAE
     Route: 048
     Dates: start: 20031114, end: 20100730
  13. RISPERDAL [Concomitant]
     Dosage: WHEN THE CONDITION IS BAD BEFORE IT SLEEPS FOR HASTE
     Route: 048
     Dates: start: 20100720, end: 20100730
  14. AKINETON TABLETS [Concomitant]
     Indication: SCHIZOPHRENIA
     Dosage: 1 MG AND NEMUNAE 2 MG AFTER SUPPER
     Route: 048
     Dates: start: 20030604, end: 20100730
  15. AKINETON TABLETS [Concomitant]
     Indication: INSOMNIA
     Dosage: 1 MG AND NEMUNAE 2 MG AFTER SUPPER
     Route: 048
     Dates: start: 20030604, end: 20100730
  16. WINTERMIN [Concomitant]
     Indication: SCHIZOPHRENIA
     Dosage: NEMUNAE
     Route: 048
     Dates: start: 20050824, end: 20100730
  17. WINTERMIN [Concomitant]
     Indication: INSOMNIA
     Dosage: NEMUNAE
     Route: 048
     Dates: start: 20050824, end: 20100730
  18. BENZALIN [Concomitant]
     Indication: SCHIZOPHRENIA
     Dosage: NEMUNAE
     Route: 048
     Dates: start: 20071211, end: 20100730
  19. BENZALIN [Concomitant]
     Indication: INSOMNIA
     Dosage: NEMUNAE
     Route: 048
     Dates: start: 20071211, end: 20100730
  20. AMOBAN [Concomitant]
     Indication: SCHIZOPHRENIA
     Dosage: NEMUNAE
     Route: 048
     Dates: start: 20071113, end: 20100730
  21. AMOBAN [Concomitant]
     Indication: INSOMNIA
     Dosage: NEMUNAE
     Route: 048
     Dates: start: 20071113, end: 20100730
  22. SERENACE [Concomitant]
     Indication: SCHIZOPHRENIA
     Dosage: AFTER THE SUPPER
     Route: 048
     Dates: start: 20030604, end: 20100730
  23. SERENACE [Concomitant]
     Indication: INSOMNIA
     Dosage: AFTER THE SUPPER
     Route: 048
     Dates: start: 20030604, end: 20100730
  24. BENZALIN [Concomitant]
     Dosage: WHEN IT IS NOT POSSIBLE TO SLEEP FOR HASTE
     Route: 048
     Dates: start: 20100720, end: 20100730

REACTIONS (1)
  - CARDIO-RESPIRATORY ARREST [None]
